FAERS Safety Report 4371551-3 (Version None)
Quarter: 2004Q2

REPORT INFORMATION
  Report Type: 
  Country: None (occurrence: None)
  Receive Date: 20040607
  Receipt Date: 20040525
  Transmission Date: 20050107
  Serious: Yes (Hospitalization, Other)
  Sender: FDA-Public Use
  Company Number: US-JNJFOC-20040505987

PATIENT
  Sex: Female
  Weight: 127.01 kg

DRUGS (8)
  1. REMICADE [Suspect]
     Indication: RHEUMATOID ARTHRITIS
     Route: 042
  2. HUMALOG [Concomitant]
  3. GLUCOPHAGE [Concomitant]
  4. INSULIN N [Concomitant]
  5. CELEBREX [Concomitant]
     Indication: ARTHRITIS
  6. MAVIK [Concomitant]
     Indication: BLOOD PRESSURE
  7. GLYBURIDE [Concomitant]
  8. FOLIC ACID [Concomitant]

REACTIONS (1)
  - NON-HODGKIN'S LYMPHOMA [None]
